FAERS Safety Report 24739024 (Version 1)
Quarter: 2024Q4

REPORT INFORMATION
  Report Type: Report from Study
  Country: ZA (occurrence: ZA)
  Receive Date: 20241216
  Receipt Date: 20241216
  Transmission Date: 20250115
  Serious: Yes (Other)
  Sender: REGENERON
  Company Number: ZA-BAYER-2024A177109

PATIENT

DRUGS (1)
  1. EYLEA [Suspect]
     Active Substance: AFLIBERCEPT
     Indication: Neovascular age-related macular degeneration
     Dosage: 1 X VIAL FOR RIGHT EYE,  SOLUTION FOR INJECTION, 40MG/ML
     Dates: start: 20241111

REACTIONS (1)
  - Cataract operation [Unknown]
